FAERS Safety Report 10915317 (Version 1)
Quarter: 2015Q1

REPORT INFORMATION
  Report Type: Spontaneous
  Country: US (occurrence: US)
  Receive Date: 20150316
  Receipt Date: 20150316
  Transmission Date: 20150721
  Serious: No
  Sender: FDA-Public Use
  Company Number: US-009507513-1503USA006322

PATIENT
  Age: 71 Year
  Sex: Female

DRUGS (1)
  1. BELSOMRA [Suspect]
     Active Substance: SUVOREXANT
     Indication: INSOMNIA
     Dosage: SPLIT THE 10MG TABLET TO MAKE A 5MG TABLET, TAKING THE SPLIT (5MG) TABLET ONCE DAILY
     Route: 048

REACTIONS (3)
  - Drug prescribing error [Unknown]
  - Wrong technique in drug usage process [Unknown]
  - Fatigue [Not Recovered/Not Resolved]
